FAERS Safety Report 4669528-3 (Version None)
Quarter: 2005Q2

REPORT INFORMATION
  Report Type: 
  Country: None (occurrence: None)
  Receive Date: 20050523
  Receipt Date: 20050511
  Transmission Date: 20051028
  Serious: Yes (Other)
  Sender: FDA-Public Use
  Company Number: PHBS2005CL06748

PATIENT
  Sex: Female

DRUGS (1)
  1. TAREG D [Suspect]
     Dosage: VALS 80 / HCT 12.5 MG/DAY
     Route: 048

REACTIONS (1)
  - BLINDNESS TRANSIENT [None]
